FAERS Safety Report 15310862 (Version 2)
Quarter: 2018Q4

REPORT INFORMATION
  Report Type: Report from Study
  Country: CO (occurrence: CO)
  Receive Date: 20180823
  Receipt Date: 20181012
  Transmission Date: 20190204
  Serious: Yes (Hospitalization)
  Sender: FDA-Public Use
  Company Number: CO-ASTELLAS-2018US037355

PATIENT
  Age: 52 Year
  Sex: Male

DRUGS (6)
  1. TACROLIMUS. [Suspect]
     Active Substance: TACROLIMUS
     Indication: RENAL TRANSPLANT
     Route: 048
     Dates: start: 20170418
  2. APIDRA [Concomitant]
     Active Substance: INSULIN GLULISINE
     Indication: TRANSPLANT
     Dosage: 20 IU, OTHER REPORTED AS EACH MEAL
     Route: 048
     Dates: start: 20170418
  3. TACROLIMUS. [Suspect]
     Active Substance: TACROLIMUS
     Indication: RENAL TRANSPLANT
     Route: 048
     Dates: start: 20170418
  4. MYCOPHENOLATE [Concomitant]
     Active Substance: MYCOPHENOLIC ACID
     Indication: TRANSPLANT
     Route: 048
     Dates: start: 20170418
  5. PREDNISOLONE. [Concomitant]
     Active Substance: PREDNISOLONE
     Indication: TRANSPLANT
     Route: 048
     Dates: start: 20170418
  6. LANTUS [Concomitant]
     Active Substance: INSULIN GLARGINE
     Indication: TRANSPLANT
     Route: 048
     Dates: start: 20170418

REACTIONS (3)
  - Diabetic ulcer [Not Recovered/Not Resolved]
  - Bladder disorder [Unknown]
  - Product dispensing error [Unknown]

NARRATIVE: CASE EVENT DATE: 20180809
